FAERS Safety Report 25287494 (Version 1)
Quarter: 2025Q2

REPORT INFORMATION
  Report Type: Spontaneous
  Country: US (occurrence: US)
  Receive Date: 20250509
  Receipt Date: 20250509
  Transmission Date: 20250717
  Serious: No
  Sender: Harrow Health
  Company Number: US-HARROW-HAR-2025-US-00128

PATIENT
  Sex: Male

DRUGS (1)
  1. TRIESENCE [Suspect]
     Active Substance: TRIAMCINOLONE ACETONIDE
     Route: 065

REACTIONS (3)
  - Eye inflammation [Unknown]
  - Condition aggravated [Unknown]
  - Therapy interrupted [Unknown]
